FAERS Safety Report 9250512 (Version 1)
Quarter: 2013Q1

REPORT INFORMATION
  Report Type: Spontaneous
  Country: US (occurrence: None)
  Receive Date: 20130305
  Receipt Date: 20130305
  Transmission Date: 20140127
  Serious: Yes (Hospitalization)
  Sender: FDA-Public Use
  Company Number: 163-21880-12050135

PATIENT
  Age: 81 Year
  Sex: Male

DRUGS (24)
  1. REVLIMID [Suspect]
     Indication: PLASMA CELL MYELOMA
     Dosage: 5 MG, QD X 21 DAYS 7 DAYS OFF, PO
     Route: 048
     Dates: start: 20120327, end: 20120407
  2. DECADRON [Concomitant]
  3. ATENOLOL (ATENOLOL) (UNKNOWN) [Concomitant]
  4. NORVASC (AMLODIPINE BESILATE) (UNKNOWN) [Concomitant]
  5. ZOCOR (SIMVASTATIN) (UNKNOWN) [Concomitant]
  6. NORCO (VICODIN) (UNKNOWN) [Concomitant]
  7. ACYCLOVIR (ACICLOVIR) (UNKNOWN) [Concomitant]
  8. FUROSEMIDE (FUROSEMIDE) (UNKNOWN) [Concomitant]
  9. AMLODIPINE (AMLODIPINE) (UNKNOWN) [Concomitant]
  10. ALLOPURINOL (ALLOPURINOL) (UNKNOWN) [Concomitant]
  11. IPRATROPIUM (IPRATROPIUM) [Concomitant]
  12. MOMETASONE (MOMETASONE) [Concomitant]
  13. ALBUTEROL (SALBUTAMOL) [Concomitant]
  14. OMEPRAZOLE (OMEPRAZOLE) [Concomitant]
  15. SEVELAMER (SEVELAMER) [Concomitant]
  16. DOCUSATE SODIUM (DOCUSATE SODIUM) [Concomitant]
  17. BISACODYL (BISACODYL) [Concomitant]
  18. TRAZODONE (TRAZODONE) [Concomitant]
  19. MIRTAZAPINE (MIRTAZAPINE) [Concomitant]
  20. ZINC (ZINC) [Concomitant]
  21. FERROUS SULFATE (FERROUS SULFATE) [Concomitant]
  22. RENAVITE (RENAVIT) [Concomitant]
  23. VITAMIN C [Concomitant]
  24. CALCIUM CITRATE/ VITAMIN D (CALCIUM CITRATE W/ COLECALCIFEROL) [Concomitant]

REACTIONS (3)
  - Deep vein thrombosis [None]
  - Epistaxis [None]
  - Anaemia [None]
